FAERS Safety Report 24352361 (Version 2)
Quarter: 2025Q2

REPORT INFORMATION
  Report Type: Spontaneous
  Country: US (occurrence: US)
  Receive Date: 20240923
  Receipt Date: 20250607
  Transmission Date: 20250716
  Serious: No
  Sender: STEMLINE THERAPEUTICS
  Company Number: US-Stemline Therapeutics, Inc.-2024ST003120

PATIENT
  Age: 64 Year
  Sex: Female

DRUGS (4)
  1. ORSERDU [Suspect]
     Active Substance: ELACESTRANT
     Indication: Product used for unknown indication
     Dates: start: 20240509
  2. ORSERDU [Suspect]
     Active Substance: ELACESTRANT
     Dates: start: 20240512
  3. ORSERDU [Suspect]
     Active Substance: ELACESTRANT
  4. ORSERDU [Suspect]
     Active Substance: ELACESTRANT

REACTIONS (7)
  - Adverse drug reaction [Unknown]
  - Product use complaint [Unknown]
  - Burn oesophageal [Not Recovered/Not Resolved]
  - Dyspepsia [Unknown]
  - Vomiting [Unknown]
  - Gastrooesophageal reflux disease [Not Recovered/Not Resolved]
  - Fatigue [Not Recovered/Not Resolved]
